FAERS Safety Report 15953838 (Version 4)
Quarter: 2019Q2

REPORT INFORMATION
  Report Type: Spontaneous
  Country: US (occurrence: US)
  Receive Date: 20190212
  Receipt Date: 20190626
  Transmission Date: 20190711
  Serious: Yes (Other)
  Sender: FDA-Public Use
  Company Number: PHEH2019US005807

PATIENT
  Sex: Female

DRUGS (5)
  1. RUCAPARIB [Suspect]
     Active Substance: RUCAPARIB
     Dosage: 600 UNK, UNK
     Route: 048
     Dates: start: 20180906
  2. RUCAPARIB [Suspect]
     Active Substance: RUCAPARIB
     Indication: OVARIAN CANCER
     Dosage: 300 MG, BID
     Route: 048
     Dates: start: 20180906
  3. RUCAPARIB [Suspect]
     Active Substance: RUCAPARIB
     Dosage: 600 UNK, UNK
     Route: 048
     Dates: start: 20180906
  4. ZOFRAN [Suspect]
     Active Substance: ONDANSETRON HYDROCHLORIDE
     Indication: PRODUCT USED FOR UNKNOWN INDICATION
     Dosage: UNK
     Route: 065
  5. AMOXICILLIN. [Suspect]
     Active Substance: AMOXICILLIN
     Indication: PRODUCT USED FOR UNKNOWN INDICATION
     Dosage: UNK
     Route: 065

REACTIONS (17)
  - Ovarian cancer [Not Recovered/Not Resolved]
  - Carbohydrate antigen 125 increased [Unknown]
  - Abdominal pain upper [Unknown]
  - Ovarian cancer recurrent [Not Recovered/Not Resolved]
  - Malignant neoplasm progression [Not Recovered/Not Resolved]
  - Nausea [Unknown]
  - Decreased appetite [Unknown]
  - Hypophagia [Unknown]
  - Pain [Recovered/Resolved]
  - Hypersensitivity [Not Recovered/Not Resolved]
  - Weight decreased [Unknown]
  - Constipation [Unknown]
  - Feeling abnormal [Unknown]
  - Intestinal mass [Unknown]
  - Headache [Not Recovered/Not Resolved]
  - Abdominal discomfort [Unknown]
  - Dyspepsia [Unknown]

NARRATIVE: CASE EVENT DATE: 2018
